FAERS Safety Report 6465224-0 (Version None)
Quarter: 2009Q4

REPORT INFORMATION
  Report Type: 
  Country: None (occurrence: None)
  Receive Date: 20091124
  Receipt Date: 20091113
  Transmission Date: 20100525
  Serious: Yes (Other)
  Sender: FDA-Public Use
  Company Number: STI-2009-03103

PATIENT
  Sex: Female

DRUGS (1)
  1. 222A ERYTHROMYCIN TOPICAL (UNSPECIFIED) [Suspect]

REACTIONS (6)
  - ABDOMINAL DISCOMFORT [None]
  - ABDOMINAL PAIN UPPER [None]
  - DIARRHOEA [None]
  - DYSPNOEA [None]
  - NAUSEA [None]
  - PALPITATIONS [None]
